FAERS Safety Report 14410910 (Version 1)
Quarter: 2018Q1

REPORT INFORMATION
  Report Type: Spontaneous
  Country: PE (occurrence: PE)
  Receive Date: 20180119
  Receipt Date: 20180119
  Transmission Date: 20180509
  Serious: Yes (Other)
  Sender: FDA-Public Use
  Company Number: PHHY2018PE006163

PATIENT
  Age: 56 Year
  Sex: Male

DRUGS (3)
  1. SANDOSTATIN LAR DEPOT [Suspect]
     Active Substance: OCTREOTIDE ACETATE
     Indication: NEUROENDOCRINE TUMOUR
     Dosage: 20 MG, 2 EVERY 4 WEEKS AND IN EVERY 12 HOURS
     Route: 042
  2. SANDOSTATIN LAR DEPOT [Suspect]
     Active Substance: OCTREOTIDE ACETATE
     Indication: NEOPLASM MALIGNANT
  3. ASPIRIN. [Concomitant]
     Active Substance: ASPIRIN
     Indication: PRODUCT USED FOR UNKNOWN INDICATION
     Dosage: 500 MG, QD
     Route: 065

REACTIONS (21)
  - Hereditary non-polyposis colorectal cancer syndrome [Unknown]
  - Liver disorder [Unknown]
  - Encephalopathy [Unknown]
  - Paraneoplastic neurological syndrome [Unknown]
  - Malignant neoplasm progression [Unknown]
  - Recurrent cancer [Unknown]
  - Metastasis [Unknown]
  - Ocular discomfort [Not Recovered/Not Resolved]
  - Fatigue [Unknown]
  - Embolism [Unknown]
  - Paraneoplastic dermatosis [Unknown]
  - Renal cyst [Unknown]
  - Hepatic cirrhosis [Unknown]
  - Gynaecomastia [Unknown]
  - Pulmonary mass [Unknown]
  - Vasculitis [Unknown]
  - Polyp [Unknown]
  - General physical health deterioration [Unknown]
  - Cystadenocarcinoma pancreas [Unknown]
  - Neuropathy peripheral [Unknown]
  - Headache [Unknown]
